FAERS Safety Report 5515170-1 (Version None)
Quarter: 2007Q4

REPORT INFORMATION
  Report Type: 
  Country: None (occurrence: None)
  Receive Date: 20071113
  Receipt Date: 20070403
  Transmission Date: 20080405
  Serious: No
  Sender: FDA-Public Use
  Company Number: A0637493A

PATIENT
  Sex: Female

DRUGS (3)
  1. COREG [Suspect]
     Indication: DRUG USE FOR UNKNOWN INDICATION
     Route: 048
  2. FUROSEMIDE [Concomitant]
  3. NORVASC [Concomitant]

REACTIONS (4)
  - BURNING SENSATION [None]
  - FEELING HOT [None]
  - HYPERSENSITIVITY [None]
  - SKIN DISCOLOURATION [None]
